FAERS Safety Report 10609723 (Version 2)
Quarter: 2015Q1

REPORT INFORMATION
  Report Type: Report from Study
  Country: FR (occurrence: FR)
  Receive Date: 20141126
  Receipt Date: 20150101
  Transmission Date: 20150720
  Serious: Yes (Hospitalization)
  Sender: FDA-Public Use
  Company Number: FR-AMGEN-FRACT2014089926

PATIENT
  Age: 69 Year
  Sex: Female

DRUGS (17)
  1. 5-FU                               /00098801/ [Concomitant]
     Active Substance: FLUOROURACIL
     Indication: ANAL CANCER
     Dosage: 400 MG/M2, UNK
     Route: 065
     Dates: start: 20141016
  2. KESTIN [Concomitant]
     Active Substance: EBASTINE
     Indication: HYPERSENSITIVITY
     Dosage: 10 MG, UNK
  3. SODIUM BICARBONATE. [Concomitant]
     Active Substance: SODIUM BICARBONATE
     Indication: GASTROINTESTINAL INFLAMMATION
     Dosage: UNK
     Dates: start: 20141029, end: 20141102
  4. SMECTA [Concomitant]
     Active Substance: MONTMORILLONITE
     Indication: PROPHYLAXIS
     Dosage: (1 SACHET ) QD
     Dates: start: 1975
  5. TANGANIL                           /00129601/ [Concomitant]
     Indication: DIZZINESS
     Dosage: 2 DF,(500MG) QD
     Dates: start: 2013
  6. TANGANIL                           /00129601/ [Concomitant]
     Indication: NAUSEA
  7. DOLIPRANE [Concomitant]
     Active Substance: ACETAMINOPHEN
     Indication: PROCTALGIA
     Dosage: 1 G, UNK
     Dates: start: 20140915
  8. IMODIUM [Concomitant]
     Active Substance: LOPERAMIDE HYDROCHLORIDE
     Indication: DIARRHOEA
     Dosage: 1 DF,(2MG) QD
     Dates: start: 20141103
  9. ESOMEPRAZOLE [Concomitant]
     Active Substance: ESOMEPRAZOLE
     Indication: DYSPEPSIA
     Dosage: 1 DF,(40MG) QD
     Dates: start: 2012
  10. TEMERIT [Concomitant]
     Active Substance: NEBIVOLOL
     Indication: HYPERTENSION
     Dosage: 5 MG, (1/4 TAB) QD
     Dates: start: 20140926
  11. CICALFATE [Concomitant]
     Indication: HAEMORRHOIDS
     Dosage: UNK
     Dates: start: 20141022
  12. PROCTOLOG                          /01026901/ [Concomitant]
     Indication: HAEMORRHOIDS
     Dosage: UNK
     Dates: start: 20141022
  13. MITOMYCIN. [Concomitant]
     Active Substance: MITOMYCIN
     Indication: ANAL CANCER
     Dosage: 10 MG/M2, UNK
     Route: 065
     Dates: start: 20141016
  14. SPASFON LYOC [Concomitant]
     Active Substance: PHLOROGLUCINOL
     Indication: FLATULENCE
     Dosage: 3 DF (160MG), QD
     Dates: start: 201408
  15. PANITUMUMAB [Suspect]
     Active Substance: PANITUMUMAB
     Indication: ANAL CANCER
     Dosage: 3 MG/KG, UNK
     Route: 065
     Dates: start: 20141016
  16. PRIMPERAN [Concomitant]
     Active Substance: METOCLOPRAMIDE HYDROCHLORIDE
     Indication: NAUSEA
     Dosage: 10 MG, UNK
  17. FUNGIZONE [Concomitant]
     Active Substance: AMPHOTERICIN B
     Indication: GASTROINTESTINAL INFLAMMATION
     Dosage: 10 %, UNK
     Dates: start: 20141029, end: 20141102

REACTIONS (2)
  - Pyrexia [Not Recovered/Not Resolved]
  - Urinary tract infection [Recovered/Resolved]

NARRATIVE: CASE EVENT DATE: 20141103
